FAERS Safety Report 24132265 (Version 2)
Quarter: 2024Q3

REPORT INFORMATION
  Report Type: Spontaneous
  Country: US (occurrence: US)
  Receive Date: 20240724
  Receipt Date: 20240726
  Transmission Date: 20241017
  Serious: No
  Sender: PFIZER
  Company Number: US-PFIZER INC-PV202400095407

PATIENT
  Age: 69 Year
  Sex: Female

DRUGS (1)
  1. INLYTA [Suspect]
     Active Substance: AXITINIB
     Dosage: 5 MG, 2X/DAY

REACTIONS (6)
  - Dysphonia [Unknown]
  - Throat tightness [Unknown]
  - Diarrhoea [Unknown]
  - Photophobia [Unknown]
  - Ophthalmic migraine [Unknown]
  - Weight decreased [Recovering/Resolving]
